FAERS Safety Report 17142819 (Version 1)
Quarter: 2019Q4

REPORT INFORMATION
  Report Type: Report from Study
  Country: US (occurrence: US)
  Receive Date: 20191211
  Receipt Date: 20191211
  Transmission Date: 20200122
  Serious: Yes (Hospitalization)
  Sender: FDA-Public Use
  Company Number: US-BAUSCH-BL-2019-064397

PATIENT
  Sex: Female

DRUGS (1)
  1. XIFAXAN [Suspect]
     Active Substance: RIFAXIMIN
     Indication: HEPATIC ENCEPHALOPATHY
     Dosage: STARTED TAKING YEARS AGO
     Route: 048

REACTIONS (4)
  - Full blood count decreased [Unknown]
  - Lung perforation [Unknown]
  - Blood bilirubin decreased [Unknown]
  - Inappropriate schedule of product administration [Unknown]
